FAERS Safety Report 4506247-8 (Version None)
Quarter: 2004Q4

REPORT INFORMATION
  Report Type: 
  Country: None (occurrence: None)
  Receive Date: 20041119
  Receipt Date: 20041110
  Transmission Date: 20050328
  Serious: Yes (Other)
  Sender: FDA-Public Use
  Company Number: US-MERCK-0411USA02086

PATIENT
  Sex: Male

DRUGS (3)
  1. VIOXX [Suspect]
     Indication: ARTHRALGIA
     Route: 048
     Dates: start: 20010218
  2. VIOXX [Suspect]
     Route: 048
     Dates: end: 20040930
  3. CELEBREX [Concomitant]
     Route: 065

REACTIONS (3)
  - ATRIAL FIBRILLATION [None]
  - CARDIAC DISORDER [None]
  - HYPERTENSION [None]
